FAERS Safety Report 9315927 (Version 1)
Quarter: 2013Q2

REPORT INFORMATION
  Report Type: Spontaneous
  Country: US (occurrence: US)
  Receive Date: 20130530
  Receipt Date: 20130530
  Transmission Date: 20140414
  Serious: Yes (Other)
  Sender: FDA-Public Use
  Company Number: US-AMGEN-USASP2013037878

PATIENT
  Age: 26 Year
  Sex: Female
  Weight: 70.3 kg

DRUGS (7)
  1. ENBREL [Suspect]
     Indication: PRODUCT USED FOR UNKNOWN INDICATION
     Dosage: 50 MG, QWK
     Route: 058
  2. OCELLA [Concomitant]
     Dosage: 3 - 0.03 MG, UNK
  3. PROBIOTICS [Concomitant]
     Dosage: UNK
  4. CALCIUM [Concomitant]
     Dosage: 500 UNK, UNK
  5. VITAMIN D                          /00107901/ [Concomitant]
     Dosage: 400 UNIT, UNK
  6. CINNAMON                           /01647501/ [Concomitant]
     Dosage: 500 MG, UNK
  7. CRANBERRY                          /01512301/ [Concomitant]
     Dosage: UNK

REACTIONS (5)
  - Kidney infection [Recovered/Resolved]
  - Musculoskeletal stiffness [Unknown]
  - Pain [Unknown]
  - Fatigue [Unknown]
  - Joint swelling [Unknown]
